FAERS Safety Report 22020265 (Version 1)
Quarter: 2023Q1

REPORT INFORMATION
  Report Type: Spontaneous
  Country: US (occurrence: US)
  Receive Date: 20230222
  Receipt Date: 20230222
  Transmission Date: 20230417
  Serious: No
  Sender: FDA-Public Use
  Company Number: US-009507513-2302USA000753

PATIENT
  Sex: Female

DRUGS (5)
  1. TEMODAR [Suspect]
     Active Substance: TEMOZOLOMIDE
     Indication: Gastrointestinal stromal tumour
     Dosage: 75 MG/ M^2/ DAY X 7 DAYS IN 21 DAY CYCLES
     Route: 048
  2. TEMODAR [Suspect]
     Active Substance: TEMOZOLOMIDE
     Indication: Paraganglion neoplasm
     Dosage: UNKNOWN DECRESED DOSE IN CYCLE 2
     Route: 048
  3. TEMODAR [Suspect]
     Active Substance: TEMOZOLOMIDE
     Dosage: UNK, RESTARTED TREATMENT
     Route: 048
  4. OLAPARIB [Suspect]
     Active Substance: OLAPARIB
     Indication: Gastrointestinal stromal tumour
     Dosage: 200 MILLIGRAM, BID
     Route: 048
  5. OLAPARIB [Suspect]
     Active Substance: OLAPARIB
     Indication: Paraganglion neoplasm
     Dosage: UNK, RESTARTED TREATMENT
     Route: 048

REACTIONS (2)
  - Nausea [Unknown]
  - Off label use [Unknown]
